FAERS Safety Report 9366875 (Version 2)
Quarter: 2013Q3

REPORT INFORMATION
  Report Type: Spontaneous
  Country: JP (occurrence: None)
  Receive Date: 20130621
  Receipt Date: 20130812
  Transmission Date: 20140515
  Serious: Yes (Other)
  Sender: FDA-Public Use
  Company Number: 2013-001894

PATIENT
  Age: 83 Year
  Sex: Female

DRUGS (2)
  1. ACTONEL [Suspect]
     Route: 048
  2. ALENDRONATE (ALENDRONATE SODIUM) [Suspect]
     Route: 048

REACTIONS (3)
  - Atypical femur fracture [None]
  - Fall [None]
  - Bone disorder [None]
